FAERS Safety Report 21080295 (Version 1)
Quarter: 2022Q3

REPORT INFORMATION
  Report Type: Spontaneous
  Country: US (occurrence: US)
  Receive Date: 20220714
  Receipt Date: 20220714
  Transmission Date: 20221027
  Serious: Yes (Hospitalization)
  Sender: FDA-Public Use
  Company Number: US-GBT-014013

PATIENT
  Age: 31 Year
  Sex: Female

DRUGS (1)
  1. OXBRYTA [Suspect]
     Active Substance: VOXELOTOR
     Indication: Sickle cell disease
     Route: 048
     Dates: start: 202205

REACTIONS (5)
  - Sickle cell anaemia with crisis [Unknown]
  - Irritability [Unknown]
  - Pain [Unknown]
  - Product dose omission issue [Unknown]
  - Affect lability [Unknown]

NARRATIVE: CASE EVENT DATE: 20220601
